FAERS Safety Report 7095507-5 (Version None)
Quarter: 2010Q4

REPORT INFORMATION
  Report Type: 
  Country: None (occurrence: None)
  Receive Date: 20101111
  Receipt Date: 20101104
  Transmission Date: 20110411
  Serious: Yes (Death, Hospitalization, Other)
  Sender: FDA-Public Use
  Company Number: US-ELI_LILLY_AND_COMPANY-US201009003042

PATIENT
  Sex: Male
  Weight: 119.73 kg

DRUGS (16)
  1. GEMZAR [Suspect]
     Indication: ADENOCARCINOMA PANCREAS
     Dosage: 2000 MG, OTHER
     Route: 042
     Dates: start: 20100819, end: 20100820
  2. SODIUM CHLORIDE [Concomitant]
     Dosage: 0.9 %, UNK
  3. ONDANSETRON [Concomitant]
     Dosage: 16 MG, UNK
     Route: 042
  4. DEXAMETHASONE [Concomitant]
     Dosage: 12 MG, UNK
     Route: 042
  5. TRAZODONE [Concomitant]
     Dosage: 100 MG, EACH EVENING
     Route: 048
  6. PROZAC [Concomitant]
     Dosage: 20 MG, 2/D
     Route: 048
  7. CYCLOBENZAPRINE [Concomitant]
     Dosage: 10 MG, 3/D
     Route: 048
  8. METHADONE [Concomitant]
     Dosage: 10 MG, 3/D
     Route: 048
  9. ALPRAZOLAM [Concomitant]
     Dosage: 0.5 MG, AS NEEDED
     Route: 048
  10. TRIAMTERENE AND HYDROCHLOROTHIAZIDE [Concomitant]
     Dosage: UNK, AS NEEDED
     Route: 048
  11. ST. JOHN'S WORT [Concomitant]
     Dosage: UNK, DAILY (1/D)
     Route: 048
  12. ASCORBIC ACID [Concomitant]
     Dosage: 500 MG, DAILY (1/D)
     Route: 048
  13. SUPER B COMPLEX /06442901/ [Concomitant]
     Dosage: UNK, DAILY (1/D)
     Route: 048
  14. MULTIVITAMINS PLUS IRON [Concomitant]
     Dosage: UNK, DAILY (1/D)
     Route: 048
  15. CYMBALTA [Concomitant]
     Dosage: 60 MG, DAILY (1/D)
     Route: 048
  16. LOMOTIL [Concomitant]
     Dosage: 2.5 MG, 2/D
     Route: 048

REACTIONS (4)
  - HAEMATOCRIT DECREASED [None]
  - HAEMOGLOBIN DECREASED [None]
  - MALIGNANT NEOPLASM PROGRESSION [None]
  - PULMONARY EMBOLISM [None]
